FAERS Safety Report 20812725 (Version 2)
Quarter: 2024Q1

REPORT INFORMATION
  Report Type: Spontaneous
  Country: ZA (occurrence: ZA)
  Receive Date: 20220511
  Receipt Date: 20240320
  Transmission Date: 20240410
  Serious: Yes (Life-Threatening, Hospitalization, Other)
  Sender: FDA-Public Use
  Company Number: ZA-MLMSERVICE-20220502-3533462-1

PATIENT
  Age: 28 Year
  Sex: Male

DRUGS (2)
  1. AMLODIPINE [Suspect]
     Active Substance: AMLODIPINE BESYLATE
     Indication: Product used for unknown indication
  2. RISPERIDONE [Suspect]
     Active Substance: RISPERIDONE
     Indication: Product used for unknown indication

REACTIONS (5)
  - Toxicity to various agents [Unknown]
  - Overdose [Unknown]
  - Shock [Recovered/Resolved]
  - Blood lactic acid increased [Recovered/Resolved]
  - Haemodynamic instability [Recovered/Resolved]
